FAERS Safety Report 22306388 (Version 2)
Quarter: 2023Q2

REPORT INFORMATION
  Report Type: Spontaneous
  Country: GB (occurrence: GB)
  Receive Date: 20230511
  Receipt Date: 20230522
  Transmission Date: 20230722
  Serious: Yes (Hospitalization, Other)
  Sender: FDA-Public Use
  Company Number: GB-ALXN-A202302049

PATIENT
  Sex: Male

DRUGS (12)
  1. BISOPROLOL [Suspect]
     Active Substance: BISOPROLOL
     Indication: Product used for unknown indication
     Dosage: UNK
     Route: 065
  2. SOLIRIS [Suspect]
     Active Substance: ECULIZUMAB
     Indication: Paroxysmal nocturnal haemoglobinuria
     Dosage: UNK
     Route: 042
     Dates: start: 20081021
  3. SOLIRIS [Suspect]
     Active Substance: ECULIZUMAB
     Dosage: 900 MG, ONCE EVERY WEEK
     Route: 042
     Dates: start: 20081111, end: 20090707
  4. SOLIRIS [Suspect]
     Active Substance: ECULIZUMAB
     Dosage: 1200 MG, ONCE EVERY WEEK
     Route: 042
     Dates: start: 20090714, end: 20120515
  5. SOLIRIS [Suspect]
     Active Substance: ECULIZUMAB
     Dosage: 1500 MG, ONCE EVERY WEEK
     Route: 042
     Dates: start: 20120522, end: 20131112
  6. SOLIRIS [Suspect]
     Active Substance: ECULIZUMAB
     Dosage: 1800 MG,ONCE EVERY WEEK
     Route: 042
     Dates: start: 20131126, end: 20210305
  7. SOLIRIS [Suspect]
     Active Substance: ECULIZUMAB
     Dosage: 1200 MG, ONCE EVERY WEEK
     Route: 042
     Dates: start: 20210319, end: 20210402
  8. SOLIRIS [Suspect]
     Active Substance: ECULIZUMAB
     Dosage: 900 MG, ONCE EVERY WEEK
     Route: 042
     Dates: start: 20210416, end: 20210723
  9. SOLIRIS [Suspect]
     Active Substance: ECULIZUMAB
     Dosage: 600 MILLIGRAM ONCE EVERY WEEK
     Route: 042
     Dates: start: 20210806, end: 20211015
  10. SOLIRIS [Suspect]
     Active Substance: ECULIZUMAB
     Dosage: 900 MG, ONCE EVERY WEEK
     Route: 042
     Dates: start: 20211105, end: 20211203
  11. SOLIRIS [Suspect]
     Active Substance: ECULIZUMAB
     Dosage: 1200 MG, ONCE EVERY WEEK
     Route: 042
     Dates: start: 20211227, end: 20220506
  12. SOLIRIS [Suspect]
     Active Substance: ECULIZUMAB
     Dosage: 1500 MG,ONCE EVERY WEEK
     Route: 042
     Dates: start: 20220520

REACTIONS (13)
  - Blood urine present [Unknown]
  - Abdominal pain upper [Unknown]
  - Chromaturia [Unknown]
  - Cardiac arrest [Unknown]
  - Feeling cold [Not Recovered/Not Resolved]
  - Malaise [Not Recovered/Not Resolved]
  - Chest pain [Unknown]
  - Dyspnoea [Unknown]
  - Fatigue [Not Recovered/Not Resolved]
  - Nasopharyngitis [Not Recovered/Not Resolved]
  - Epistaxis [Not Recovered/Not Resolved]
  - Off label use [Unknown]
  - Feeling hot [Unknown]

NARRATIVE: CASE EVENT DATE: 20131126
